FAERS Safety Report 5236543-0 (Version None)
Quarter: 2007Q1

REPORT INFORMATION
  Report Type: 
  Country: None (occurrence: None)
  Receive Date: 20070208
  Receipt Date: 20070131
  Transmission Date: 20070707
  Serious: Yes (Other)
  Sender: FDA-Public Use
  Company Number: URSO-2006-053

PATIENT
  Age: 44 Year
  Sex: Male

DRUGS (5)
  1. URSO 250 [Suspect]
     Dosage: 300MG QD PO
     Route: 048
     Dates: start: 20061006, end: 20061124
  2. ALLOPURINOL [Suspect]
     Dosage: PO
     Route: 048
  3. EPL(POLYENPHOSPHATIDYL CHOLINE) [Suspect]
     Dosage: PO
     Route: 048
  4. LEVOFLOXACIN [Suspect]
     Dosage: PO
     Route: 048
  5. MUCODYINE(CARBOCISTEINE) [Suspect]
     Dosage: PO
     Route: 048

REACTIONS (1)
  - DRUG ERUPTION [None]
